FAERS Safety Report 18021052 (Version 1)
Quarter: 2020Q3

REPORT INFORMATION
  Report Type: Spontaneous
  Country: BR (occurrence: BR)
  Receive Date: 20200714
  Receipt Date: 20200714
  Transmission Date: 20201103
  Serious: Yes (Other)
  Sender: FDA-Public Use
  Company Number: BR-ELI_LILLY_AND_COMPANY-BR202006011646

PATIENT
  Age: 43 Year
  Sex: Male
  Weight: 87.5 kg

DRUGS (5)
  1. GARDENAL [PHENOBARBITAL] [Suspect]
     Active Substance: PHENOBARBITAL
     Indication: SEIZURE
  2. GARDENAL [PHENOBARBITAL] [Suspect]
     Active Substance: PHENOBARBITAL
     Indication: HIPPOCAMPAL SCLEROSIS
     Dosage: 100 MG, DAILY
     Route: 048
     Dates: start: 2006
  3. DEPAKOTE [Suspect]
     Active Substance: DIVALPROEX SODIUM
     Indication: SEIZURE
  4. DEPAKOTE [Suspect]
     Active Substance: DIVALPROEX SODIUM
     Indication: HIPPOCAMPAL SCLEROSIS
     Dosage: 500 MG, DAILY
     Route: 048
     Dates: start: 2012
  5. TADALAFILA 5MG [Suspect]
     Active Substance: TADALAFIL
     Indication: ERECTILE DYSFUNCTION
     Dosage: 5 MG, HALF AN HOUR BEFORE ANY SEXUAL INTERCOURSE
     Route: 048
     Dates: start: 2019, end: 202006

REACTIONS (3)
  - Petit mal epilepsy [Unknown]
  - Seizure [Recovered/Resolved with Sequelae]
  - Headache [Unknown]

NARRATIVE: CASE EVENT DATE: 202006
